FAERS Safety Report 12219475 (Version 2)
Quarter: 2016Q2

REPORT INFORMATION
  Report Type: Other
  Country: IT (occurrence: IT)
  Receive Date: 20160329
  Receipt Date: 20160405
  Transmission Date: 20160815
  Serious: Yes (Hospitalization)
  Sender: FDA-Public Use
  Company Number: IT-VALIDUS PHARMACEUTICALS LLC-IT-2016VAL000565

PATIENT
  Age: 65 Year
  Sex: Male

DRUGS (6)
  1. RIGENTEX [Suspect]
     Active Substance: .ALPHA.-TOCOPHEROL ACETATE, D-
     Indication: PENIS DISORDER
     Dosage: 800 MG, DAILY
     Route: 048
     Dates: start: 20160222, end: 20160228
  2. ASPIRIN                            /00002701/ [Suspect]
     Active Substance: ASPIRIN
     Indication: PYREXIA
     Dosage: UNK
     Route: 048
     Dates: start: 20160227, end: 20160227
  3. TRENTAL [Suspect]
     Active Substance: PENTOXIFYLLINE
     Indication: PENIS DISORDER
     Dosage: 400 MG, DAILY, MODIFIED-RELEASE TABLET
     Route: 048
     Dates: start: 20160222, end: 20160228
  4. BIFRIZIDE [Concomitant]
     Active Substance: HYDROCHLOROTHIAZIDE
     Indication: HYPERTENSION
     Dosage: UNK
  5. POTABA [Suspect]
     Active Substance: AMINOBENZOATE POTASSIUM
     Indication: PENIS DISORDER
     Dosage: 2 IU, QD
     Route: 048
     Dates: start: 20160222, end: 20160228
  6. EFFEXOR [Concomitant]
     Active Substance: VENLAFAXINE HYDROCHLORIDE
     Indication: DEPRESSION
     Dosage: UNK

REACTIONS (2)
  - Erythema [Recovering/Resolving]
  - Rash macular [Recovering/Resolving]

NARRATIVE: CASE EVENT DATE: 20160228
